FAERS Safety Report 7634347-2 (Version None)
Quarter: 2011Q3

REPORT INFORMATION
  Report Type: 
  Country: None (occurrence: None)
  Receive Date: 20110725
  Receipt Date: 20110124
  Transmission Date: 20111222
  Serious: Yes (Hospitalization, Other)
  Sender: FDA-Public Use
  Company Number: PHHY2010JP41382

PATIENT
  Sex: Female

DRUGS (19)
  1. CERTICAN [Suspect]
     Indication: HEART TRANSPLANT
     Dosage: 0.5 TO 1.5 MG
     Route: 048
  2. PRAVASTATIN SODIUM [Concomitant]
     Dosage: 10 MG
     Route: 048
     Dates: start: 20070820
  3. CYCLOSPORINE [Suspect]
     Dosage: 150-200MG/DAY
     Dates: start: 20071015, end: 20080305
  4. MYCOPHENOLATE MOFETIL [Concomitant]
     Indication: HEART TRANSPLANT
     Dosage: 2.5 MG
     Route: 048
     Dates: start: 20070820
  5. SANDIMMUNE [Suspect]
     Indication: HEART TRANSPLANT
     Dosage: 10 MG TO 50 MG
     Route: 042
     Dates: end: 20071014
  6. PREDNISOLONE [Concomitant]
     Dosage: 20 MG, UNK
     Route: 048
     Dates: start: 20091021
  7. PREDNISOLONE [Concomitant]
     Dosage: 15 MG, UNK
     Route: 048
     Dates: start: 20091021
  8. PREDNISOLONE [Concomitant]
     Dosage: 10 MG, UNK
     Route: 048
     Dates: start: 20091021
  9. CYCLOSPORINE [Suspect]
     Dosage: 100 MG TO 150 MG DAILY
     Dates: start: 20080305, end: 20100416
  10. CARVEDILOL [Concomitant]
     Dosage: 10 MG
     Route: 048
  11. PREDNISOLONE [Concomitant]
     Indication: HEART TRANSPLANT
     Dosage: 4 MG, UNK
     Route: 048
     Dates: start: 20091021
  12. CYCLOSPORINE [Suspect]
     Indication: HEART TRANSPLANT
     Dosage: 1 MG TO 100 MG
     Dates: start: 20070820, end: 20070825
  13. FAMOTIDINE [Concomitant]
     Dosage: 20 MG
     Route: 048
  14. ENALAPRIL MALEATE [Concomitant]
     Dosage: 2.5 MG
     Route: 048
     Dates: start: 20071021
  15. PROGRAF [Concomitant]
     Indication: HEART TRANSPLANT
     Dosage: 4 MG
     Route: 048
     Dates: start: 20100416
  16. MYCOPHENOLATE MOFETIL [Concomitant]
     Dosage: 1.5 MG,
     Dates: start: 20100825
  17. SULFAMETHOXAZOLE [Concomitant]
     Dosage: 1 DF
     Route: 048
     Dates: start: 20070820, end: 20090114
  18. DIFLUCAN [Concomitant]
     Dosage: 100 MG
     Route: 048
     Dates: start: 20071010, end: 20080305
  19. ADRENAL HORMONE PREPARATIONS [Concomitant]
     Indication: HEART TRANSPLANT
     Dosage: 60 MG
     Route: 048
     Dates: start: 20070820

REACTIONS (4)
  - STAPHYLOCOCCAL INFECTION [None]
  - HEART TRANSPLANT REJECTION [None]
  - CORONARY ARTERY DISEASE [None]
  - MEDIASTINITIS [None]
